FAERS Safety Report 9372756 (Version 1)
Quarter: 2013Q2

REPORT INFORMATION
  Report Type: Report from Study
  Country: US (occurrence: US)
  Receive Date: 20130627
  Receipt Date: 20130627
  Transmission Date: 20140414
  Serious: Yes (Death, Hospitalization)
  Sender: FDA-Public Use
  Company Number: US-MYLANLABS-2013S1008007

PATIENT
  Age: 69 Year
  Sex: Male
  Weight: 78 kg

DRUGS (12)
  1. CLOZAPINE TABLETS [Suspect]
     Route: 048
     Dates: start: 2010
  2. CLOZAPINE TABLETS [Suspect]
     Route: 048
     Dates: start: 2010
  3. CARBIDOPA/LEVODOPA [Concomitant]
     Dosage: 25MG/100MG
     Route: 048
  4. ATIVAN [Concomitant]
     Route: 048
  5. OMEPRAZOLE [Concomitant]
     Route: 048
  6. PERPHENAZINE [Concomitant]
     Route: 048
  7. RESTORIL [Concomitant]
     Route: 048
  8. TRIHEXYPHENIDYL [Concomitant]
     Route: 048
  9. ATENOLOL [Concomitant]
     Route: 048
  10. CITALOPRAM [Concomitant]
     Route: 048
  11. LEVOTHYROXINE [Concomitant]
     Route: 048
  12. DOXAZOSIN [Concomitant]
     Route: 048

REACTIONS (5)
  - Aspiration [Fatal]
  - Vomiting [Unknown]
  - Asthenia [Unknown]
  - Abnormal behaviour [Unknown]
  - Unevaluable event [Unknown]
